FAERS Safety Report 23656450 (Version 1)
Quarter: 2024Q1

REPORT INFORMATION
  Report Type: Spontaneous
  Country: US (occurrence: US)
  Receive Date: 20240321
  Receipt Date: 20240321
  Transmission Date: 20240410
  Serious: No
  Sender: FDA-Public Use
  Company Number: US-Accord-374858

PATIENT
  Sex: Female
  Weight: 74.84 kg

DRUGS (3)
  1. METHOTREXATE [Suspect]
     Active Substance: METHOTREXATE
     Indication: Rheumatoid arthritis
     Dosage: 2.5MG, 3 TABLETS IN THE MORNING AND EVENING, ONCE WEEKLY ON SATURDAYS
  2. COVID-19 VACCINE [Concomitant]
     Dosage: COVID VACCINE BOOSTER SHOT
     Dates: start: 20220128
  3. METHOTREXATE [Suspect]
     Active Substance: METHOTREXATE
     Indication: Rheumatoid arthritis
     Dosage: 2.5MG, 4 TABLETS IN THE MORNING AND EVENING, ONCE WEEKLY ON SATURDAYS

REACTIONS (6)
  - Headache [Recovered/Resolved]
  - Nausea [Recovered/Resolved]
  - Alopecia [Unknown]
  - Hair growth abnormal [Unknown]
  - Photosensitivity reaction [Recovered/Resolved]
  - Product availability issue [Unknown]
